FAERS Safety Report 12389724 (Version 1)
Quarter: 2016Q2

REPORT INFORMATION
  Report Type: Spontaneous
  Country: BR (occurrence: US)
  Receive Date: 20160520
  Receipt Date: 20160520
  Transmission Date: 20160815
  Serious: Yes (Death)
  Sender: FDA-Public Use
  Company Number: BR-JNJFOC-20160515868

PATIENT
  Age: 19 Year

DRUGS (2)
  1. IMOSEC [Suspect]
     Active Substance: LOPERAMIDE
     Indication: PRODUCT USED FOR UNKNOWN INDICATION
     Route: 065
  2. IMOSEC [Suspect]
     Active Substance: LOPERAMIDE
     Route: 065

REACTIONS (1)
  - Bladder dilatation [Fatal]
